FAERS Safety Report 24302455 (Version 1)
Quarter: 2024Q3

REPORT INFORMATION
  Report Type: Spontaneous
  Country: CN (occurrence: CN)
  Receive Date: 20240910
  Receipt Date: 20240910
  Transmission Date: 20241016
  Serious: Yes (Life-Threatening)
  Sender: GRIFOLS
  Company Number: CN-IGSA-BIG0030519

PATIENT
  Age: 72 Year
  Sex: Female

DRUGS (1)
  1. HUMAN ALBUMIN GRIFOLS 20% [Suspect]
     Active Substance: ALBUMIN HUMAN
     Indication: Hypoproteinaemia
     Dosage: 10 GRAM, SINGLE
     Route: 042
     Dates: start: 20240817, end: 20240818

REACTIONS (6)
  - Tachypnoea [Recovering/Resolving]
  - Muscle spasms [Recovering/Resolving]
  - Dyspnoea [Recovering/Resolving]
  - Rales [Recovering/Resolving]
  - Sinus arrhythmia [Recovering/Resolving]
  - Seizure [Recovering/Resolving]

NARRATIVE: CASE EVENT DATE: 20240817
